FAERS Safety Report 18987535 (Version 5)
Quarter: 2022Q1

REPORT INFORMATION
  Report Type: Spontaneous
  Country: US (occurrence: US)
  Receive Date: 20210309
  Receipt Date: 20220316
  Transmission Date: 20220423
  Serious: No
  Sender: FDA-Public Use
  Company Number: US-PFIZER INC-2021227536

PATIENT
  Age: 61 Year
  Sex: Female
  Weight: 79.365 kg

DRUGS (10)
  1. IBRANCE [Suspect]
     Active Substance: PALBOCICLIB
     Indication: Breast cancer female
     Dosage: 125 MG, CYCLIC (1 TAB 1 DAILY FOR 21 DAYS, THEN 7 DAYS OFF EVERY 28 DAY CYCLE)
     Route: 048
     Dates: start: 202007
  2. IBRANCE [Suspect]
     Active Substance: PALBOCICLIB
     Indication: Breast cancer female
     Dosage: 125 MG, CYCLIC (1 TAB 1 DAILY FOR 21 DAYS, THEN 7 DAYS OFF EVERY 28 DAY CYCLE)
     Dates: start: 20210218
  3. IBRANCE [Suspect]
     Active Substance: PALBOCICLIB
     Dosage: 125MG, CYCLIC (ONCE A DAY FOR 21 DAYS, THEN 7 DAYS OFF)
     Route: 048
     Dates: start: 20210427
  4. FASLODEX [Concomitant]
     Active Substance: FULVESTRANT
     Dosage: 250 MG/ML SYRINGE
  5. ASPIRIN [Concomitant]
     Active Substance: ASPIRIN
     Dosage: 100 %
  6. VITAMIN D3 [Concomitant]
     Active Substance: CHOLECALCIFEROL
     Dosage: 10(400)/ML DROPS
  7. PROZAC [Concomitant]
     Active Substance: FLUOXETINE HYDROCHLORIDE
     Dosage: 10 MG
  8. VALSARTAN [Concomitant]
     Active Substance: VALSARTAN
     Dosage: 160 MG
  9. AMLODIPINE BESYLATE [Concomitant]
     Active Substance: AMLODIPINE BESYLATE
     Dosage: 10 MG
  10. METOPROLOL SUCCINATE [Concomitant]
     Active Substance: METOPROLOL SUCCINATE
     Dosage: UNK

REACTIONS (7)
  - Stomatitis [Unknown]
  - Vomiting [Not Recovered/Not Resolved]
  - Nausea [Not Recovered/Not Resolved]
  - Diarrhoea [Not Recovered/Not Resolved]
  - Retching [Not Recovered/Not Resolved]
  - Decreased appetite [Not Recovered/Not Resolved]
  - Nerve injury [Unknown]
